FAERS Safety Report 8060192-2 (Version None)
Quarter: 2012Q1

REPORT INFORMATION
  Report Type: 
  Country: None (occurrence: None)
  Receive Date: 20120119
  Receipt Date: 20120119
  Transmission Date: 20120608
  Serious: Yes (Hospitalization)
  Sender: FDA-Public Use
  Company Number: None

PATIENT
  Age: 79 Year
  Sex: Female
  Weight: 55 kg

DRUGS (9)
  1. HYZAAR [Concomitant]
  2. COUMADIN [Suspect]
     Indication: DEEP VEIN THROMBOSIS
     Dosage: 5 MG DAILY PO CHRONIC
     Route: 048
  3. RYTHMOL [Concomitant]
  4. CA + VIT D [Concomitant]
  5. NEVANAC [Concomitant]
  6. METOPROLOL SUCCINATE [Concomitant]
  7. FERROUS SULFATE TAB [Concomitant]
  8. LISINOPRIL [Concomitant]
  9. LASIX [Concomitant]

REACTIONS (2)
  - RENAL FAILURE ACUTE [None]
  - HAEMARTHROSIS [None]
